FAERS Safety Report 7606659-X (Version None)
Quarter: 2011Q3

REPORT INFORMATION
  Report Type: 
  Country: None (occurrence: None)
  Receive Date: 20110713
  Receipt Date: 20110704
  Transmission Date: 20111222
  Serious: Yes (Other)
  Sender: FDA-Public Use
  Company Number: CN-ROCHE-670043

PATIENT
  Sex: Female
  Weight: 58 kg

DRUGS (5)
  1. CELLCEPT [Suspect]
     Indication: RENAL TRANSPLANT
     Route: 048
     Dates: start: 20041214, end: 20090801
  2. CELLCEPT [Suspect]
     Route: 048
     Dates: start: 20110512
  3. BREDININ [Concomitant]
     Indication: RENAL TRANSPLANT
     Dosage: MIZORIBINE INSTEAD OF MYCOPHENOLATE MOFETIL
     Dates: start: 20090801
  4. PREDNISONE [Concomitant]
     Indication: RENAL TRANSPLANT
     Route: 048
     Dates: start: 20041214
  5. PROGRAF [Concomitant]
     Indication: RENAL TRANSPLANT
     Dosage: MANUFACTURED BY ASTELLAS.
     Route: 048
     Dates: start: 20041214

REACTIONS (4)
  - DYSPEPSIA [None]
  - BLOOD CREATININE INCREASED [None]
  - WEIGHT DECREASED [None]
  - DIARRHOEA [None]
